FAERS Safety Report 20926366 (Version 1)
Quarter: 2022Q2

REPORT INFORMATION
  Report Type: Spontaneous
  Country: ES (occurrence: ES)
  Receive Date: 20220607
  Receipt Date: 20220607
  Transmission Date: 20220721
  Serious: Yes (Other)
  Sender: FDA-Public Use
  Company Number: ES-GILEAD-2022-0582284

PATIENT
  Age: 50 Year
  Sex: Male

DRUGS (6)
  1. TERBINAFINE [Suspect]
     Active Substance: TERBINAFINE
     Indication: Dermatophytosis
     Dosage: UNK
  2. POSACONAZOLE [Suspect]
     Active Substance: POSACONAZOLE
     Indication: Dermatophytosis
     Dosage: UNK
  3. ITRACONAZOLE [Suspect]
     Active Substance: ITRACONAZOLE
     Indication: Dermatophytosis
     Dosage: 400 MILLIGRAM, QD (400 MG, QD)
  4. VORICONAZOLE [Suspect]
     Active Substance: VORICONAZOLE
     Indication: Dermatophytosis
     Dosage: UNK
  5. AMPHOTERICIN B [Suspect]
     Active Substance: AMPHOTERICIN B
     Indication: Dermatophytosis
     Dosage: UNK
  6. GRISEOFULVIN [Suspect]
     Active Substance: GRISEOFULVIN
     Indication: Dermatophytosis
     Dosage: UNK

REACTIONS (2)
  - CARD9 deficiency [Unknown]
  - Drug ineffective [Unknown]
